FAERS Safety Report 7439601-5 (Version None)
Quarter: 2011Q2

REPORT INFORMATION
  Report Type: 
  Country: None (occurrence: None)
  Receive Date: 20110427
  Receipt Date: 20090731
  Transmission Date: 20111010
  Serious: Yes (Hospitalization, Other)
  Sender: FDA-Public Use
  Company Number: US-BAYER-200928760NA

PATIENT
  Age: 65 Year
  Sex: Male
  Weight: 108 kg

DRUGS (39)
  1. TRASYLOL [Suspect]
     Dosage: 50CC/HR INFUSION
     Route: 042
     Dates: start: 20060120, end: 20060120
  2. ZOCOR [Concomitant]
     Indication: BLOOD CHOLESTEROL INCREASED
     Dosage: 20-80 MG
     Route: 048
     Dates: start: 20040805
  3. GLYBURIDE [Concomitant]
     Indication: BLOOD GLUCOSE ABNORMAL
     Dosage: 5 MG MORNING, 5-10 MG EVENING
     Route: 048
     Dates: start: 19800101, end: 20060518
  4. ANCEF [Concomitant]
     Dosage: 1-2 G
     Route: 042
     Dates: start: 20060120
  5. ATROPINE [Concomitant]
     Dosage: 1 MG, UNK
     Route: 042
     Dates: start: 20060120
  6. INSULIN REGULAR [INSULIN PORCINE] [Concomitant]
     Dosage: 4 UNITS /HR DRIP
     Route: 041
     Dates: start: 20060120
  7. SUCCINYLCHOLINE CHLORIDE [Concomitant]
     Dosage: 200MG/10ML
     Route: 042
     Dates: start: 20060120, end: 20060120
  8. OPTIRAY 320 [IOVERSOL] [Concomitant]
     Indication: CATHETERISATION CARDIAC
     Dosage: 110 ML, UNK
     Dates: start: 20060119
  9. CARDIOPLEGIA [Concomitant]
     Dosage: 1300 ML, UNK
     Dates: start: 20060120
  10. NIPRIDE [Concomitant]
     Dosage: 50 MG, UNK
     Route: 042
     Dates: start: 20060120
  11. PHENYLEPHRINE HCL [Concomitant]
     Dosage: 1% 5?G/MIN
     Route: 042
     Dates: start: 20060120
  12. VANCOMYCIN [Concomitant]
     Dosage: UNK
     Route: 042
     Dates: start: 20060215, end: 20060221
  13. METOPROLOL [Concomitant]
     Indication: ATRIAL FLUTTER
     Dosage: UNK
     Dates: start: 20060125
  14. PROCAINAMIDE [Concomitant]
     Indication: ATRIAL FLUTTER
     Dosage: UNK
     Dates: start: 20060125
  15. PLAVIX [Concomitant]
     Indication: COAGULOPATHY
     Dosage: 75 MG, QD
     Route: 048
     Dates: start: 20030101
  16. DOBUTREX [Concomitant]
     Dosage: 1.5 MCG/KG
     Dates: start: 20060120
  17. TRASYLOL [Suspect]
     Indication: CORONARY ARTERY BYPASS
     Dosage: 1 ML, INITIAL DOSE
     Route: 042
     Dates: start: 20060120, end: 20060120
  18. TRASYLOL [Suspect]
     Dosage: 200 ML, PRIME
     Route: 042
     Dates: start: 20060120, end: 20060120
  19. BENADRYL [Concomitant]
     Dosage: 50 MG, UNK
     Route: 042
     Dates: start: 20060120
  20. HEPARIN [Concomitant]
     Dosage: 49000 U, UNK
     Route: 042
     Dates: start: 20060120
  21. ACETYLSALICYLIC ACID SRT [Concomitant]
     Dosage: 81 MG, UNK
     Route: 048
     Dates: start: 20040101
  22. ETODOLAC [Concomitant]
     Indication: PAIN
     Dosage: 500 MG, ONCE TO TWICE DAILY
     Route: 048
     Dates: start: 20050210, end: 20060119
  23. HESPAN IN EXCEL PLASTIC CONTAINER [Concomitant]
     Dosage: 500 ML, BID
     Route: 042
     Dates: start: 20060120, end: 20060120
  24. AMIODARONE [Concomitant]
     Indication: ATRIAL FLUTTER
     Dosage: UNK
     Dates: start: 20060125
  25. TRASYLOL [Suspect]
     Dosage: 199 ML, LOADING DOSE
     Route: 042
     Dates: start: 20060120, end: 20060120
  26. LISINOPRIL [Concomitant]
     Indication: BLOOD PRESSURE MANAGEMENT
     Dosage: 10-40 MG, BID
     Route: 048
     Dates: start: 19900101
  27. NITROGLYCERIN [Concomitant]
     Dosage: 5 MG, UNK
     Route: 042
     Dates: start: 20060120
  28. ALBUMIN NOS [Concomitant]
     Dosage: 50 ML, 25%
     Route: 042
     Dates: start: 20060120, end: 20060120
  29. RESTORIL [Concomitant]
     Indication: INSOMNIA
     Dosage: 15-30 MG AT BED TIME, PRN
     Route: 048
     Dates: start: 20060119, end: 20060119
  30. SUBLIMAZE PRESERVATIVE FREE [Concomitant]
     Dosage: 50 ?G, 2CC
     Route: 042
     Dates: start: 20060119, end: 20060119
  31. OPTIRAY 320 [IOVERSOL] [Concomitant]
     Indication: ARTERIOGRAM CORONARY
  32. MYOVIEW [Concomitant]
     Indication: SCAN MYOCARDIAL PERFUSION
     Dosage: UNK
     Dates: start: 20060111
  33. ATIVAN [Concomitant]
     Dosage: 2 MG, UNK
     Route: 042
     Dates: start: 20060120
  34. HYDROCHLOROTHIAZIDE [Concomitant]
     Indication: BLOOD PRESSURE MANAGEMENT
     Dosage: 25 MG, QD
     Route: 048
     Dates: start: 20040101
  35. PROTAMINE SULFATE [Concomitant]
     Dosage: 400 MG, UNK
     Route: 042
     Dates: start: 20060120
  36. SUBLIMAZE PRESERVATIVE FREE [Concomitant]
     Dosage: 20 ML, UNK
     Route: 042
     Dates: start: 20060120, end: 20060120
  37. DEXAMETHASONE [Concomitant]
     Dosage: 4 MG/ML
     Route: 042
     Dates: start: 20060120
  38. VERSED [Concomitant]
     Dosage: 20 MG, UNK
     Route: 042
     Dates: start: 20060120, end: 20060120
  39. AVELOX [Concomitant]
     Dosage: UNK
     Dates: start: 20060209

REACTIONS (11)
  - EMOTIONAL DISTRESS [None]
  - PAIN [None]
  - RENAL FAILURE [None]
  - RENAL INJURY [None]
  - UNEVALUABLE EVENT [None]
  - INJURY [None]
  - FEAR [None]
  - ANHEDONIA [None]
  - RENAL IMPAIRMENT [None]
  - STRESS [None]
  - ANXIETY [None]
